FAERS Safety Report 7606774-0 (Version None)
Quarter: 2011Q3

REPORT INFORMATION
  Report Type: 
  Country: None (occurrence: None)
  Receive Date: 20110713
  Receipt Date: 20110706
  Transmission Date: 20111222
  Serious: Yes (Other)
  Sender: FDA-Public Use
  Company Number: US-ROCHE-787909

PATIENT
  Age: 51 Year
  Sex: Female

DRUGS (7)
  1. KLONOPIN [Suspect]
     Route: 048
     Dates: start: 20110603, end: 20110101
  2. ABILIFY [Suspect]
     Indication: MOOD SWINGS
     Route: 048
     Dates: start: 20110301
  3. EFFEXOR [Suspect]
     Indication: OBSESSIVE-COMPULSIVE DISORDER
     Route: 048
  4. XANAX [Suspect]
     Route: 065
     Dates: end: 20110101
  5. ASENAPINE [Suspect]
     Indication: MOOD SWINGS
     Route: 060
     Dates: start: 20110331
  6. EFFEXOR [Suspect]
     Route: 048
  7. TRILEPTAL [Concomitant]
     Indication: GLUTAMATE DEHYDROGENASE INCREASED
     Route: 065

REACTIONS (3)
  - WEIGHT INCREASED [None]
  - SEROTONIN SYNDROME [None]
  - MANIA [None]
